FAERS Safety Report 5975554-4 (Version None)
Quarter: 2008Q4

REPORT INFORMATION
  Report Type: 
  Country: None (occurrence: None)
  Receive Date: 20081202
  Receipt Date: 20080630
  Transmission Date: 20090506
  Serious: No
  Sender: FDA-Public Use
  Company Number: A0735364A

PATIENT
  Sex: Female

DRUGS (1)
  1. AUGMENTIN XR [Suspect]
     Dosage: 1TAB TWICE PER DAY
     Dates: start: 20080627

REACTIONS (1)
  - NAUSEA [None]
